FAERS Safety Report 5100509-1 (Version None)
Quarter: 2006Q3

REPORT INFORMATION
  Report Type: 
  Country: None (occurrence: None)
  Receive Date: 20060907
  Receipt Date: 20060907
  Transmission Date: 20061208
  Serious: Yes (Disabling, Other)
  Sender: FDA-Public Use
  Company Number: None

PATIENT
  Sex: Male
  Weight: 81.6475 kg

DRUGS (2)
  1. MICARDIS [Suspect]
     Indication: HYPERTENSION
     Dosage: 1 TABLET DAILY ONCE DAILY
     Dates: start: 20060718, end: 20060816
  2. MICARDIS [Suspect]
     Dosage: 1 TABLET DAILY ONCE DAILY

REACTIONS (1)
  - BLINDNESS TRANSIENT [None]
